FAERS Safety Report 9254805 (Version 3)
Quarter: 2013Q3

REPORT INFORMATION
  Report Type: Spontaneous
  Country: DE (occurrence: DE)
  Receive Date: 20130425
  Receipt Date: 20130808
  Transmission Date: 20140515
  Serious: Yes (Hospitalization, Disabling, Other)
  Sender: FDA-Public Use
  Company Number: DE-BAYER-2013-050394

PATIENT
  Age: 24 Year
  Sex: Female

DRUGS (1)
  1. YASMIN [Suspect]
     Dosage: UNK
     Dates: start: 2008, end: 20090116

REACTIONS (31)
  - Pelvic venous thrombosis [None]
  - Venous occlusion [None]
  - Groin pain [None]
  - Back pain [None]
  - Back pain [None]
  - Back pain [None]
  - Fatigue [None]
  - Apathy [None]
  - Pulmonary embolism [None]
  - Pneumonia [None]
  - Pulmonary infarction [None]
  - Haemoptysis [None]
  - Dyspnoea [None]
  - Tachycardia [None]
  - Loss of consciousness [None]
  - Anxiety disorder [None]
  - Fear of death [None]
  - Pain [None]
  - Deep vein thrombosis [None]
  - Local swelling [None]
  - Skin discolouration [None]
  - Varicose vein [None]
  - Panic attack [None]
  - Post thrombotic syndrome [None]
  - Hepatic steatosis [None]
  - Depressed mood [None]
  - Haemorrhagic ovarian cyst [Recovered/Resolved]
  - Postoperative wound infection [None]
  - Splenomegaly [None]
  - Lymphadenopathy [None]
  - Haematochezia [None]
